FAERS Safety Report 21770951 (Version 1)
Quarter: 2022Q4

REPORT INFORMATION
  Report Type: Other
  Country: US (occurrence: None)
  Receive Date: 20221223
  Receipt Date: 20221223
  Transmission Date: 20230112
  Serious: Yes (Other)
  Sender: FDA-Public Use
  Company Number: US-ROCHE-3245035

PATIENT
  Age: 50 Year
  Sex: Female

DRUGS (4)
  1. CAPECITABINE [Suspect]
     Active Substance: CAPECITABINE
     Indication: Cholangiocarcinoma
     Route: 048
  2. PEMIGATINIB [Concomitant]
     Active Substance: PEMIGATINIB
     Indication: Cholangiocarcinoma
  3. FUTIBATINIB [Concomitant]
     Active Substance: FUTIBATINIB
     Indication: Cholangiocarcinoma
  4. FUTIBATINIB [Concomitant]
     Active Substance: FUTIBATINIB

REACTIONS (2)
  - Disease progression [Unknown]
  - Drug ineffective [Unknown]
